FAERS Safety Report 5976552-7 (Version None)
Quarter: 2008Q4

REPORT INFORMATION
  Report Type: 
  Country: None (occurrence: None)
  Receive Date: 20081125
  Receipt Date: 20081113
  Transmission Date: 20090506
  Serious: Yes (Other)
  Sender: FDA-Public Use
  Company Number: 2008TJ0280

PATIENT
  Age: 18 Year
  Sex: Female

DRUGS (7)
  1. TWINJECT 0.3 [Suspect]
     Indication: ANAPHYLACTIC REACTION
     Dosage: 0.3 MG, PRN, SUBCUTANEOUS/ INTRAMUSCULAR
     Route: 058
     Dates: start: 20081111, end: 20081111
  2. PULMICORT NEBUAMP (BUDESONIDE), TWICE DAILY AS NEEDED [Concomitant]
  3. EPIPEN (EPINEPHRINE) 0.3 MG, AS NEEDED [Concomitant]
  4. SYMBICORT AS NEEDED [Concomitant]
  5. REACTIN (CETIRIZINE), 20 MG PER DAY [Concomitant]
  6. SINGULAIR (MONETELUKAST), 10 MG ER DAY [Concomitant]
  7. ATIVAN (LORAZEPAM), 1 MG PER DAY, AS NEEDED [Concomitant]

REACTIONS (4)
  - ANAPHYLACTIC REACTION [None]
  - DEVICE MALFUNCTION [None]
  - PRODUCT QUALITY ISSUE [None]
  - WRONG TECHNIQUE IN DRUG USAGE PROCESS [None]
